FAERS Safety Report 18726073 (Version 2)
Quarter: 2023Q4

REPORT INFORMATION
  Report Type: Spontaneous
  Country: US (occurrence: US)
  Receive Date: 20210111
  Receipt Date: 20231107
  Transmission Date: 20240110
  Serious: Yes (Life-Threatening, Hospitalization, Other)
  Sender: FDA-Public Use
  Company Number: US-LUPIN PHARMACEUTICALS INC.-2020-11688

PATIENT
  Age: 43 Year
  Sex: Male

DRUGS (2)
  1. METFORMIN [Suspect]
     Active Substance: METFORMIN HYDROCHLORIDE
     Indication: Type 2 diabetes mellitus
     Dosage: 480000 MILLIGRAM, SINGLE
     Route: 048
  2. DEXTROSE [Concomitant]
     Active Substance: DEXTROSE\DEXTROSE MONOHYDRATE
     Indication: Hypoglycaemia
     Dosage: UNK, D10% INFUSION
     Route: 065

REACTIONS (10)
  - Lactic acidosis [Recovered/Resolved]
  - Intentional overdose [Unknown]
  - Suicide attempt [Unknown]
  - Mental impairment [Unknown]
  - Vomiting [Unknown]
  - Hyperkalaemia [Unknown]
  - Hypotension [Unknown]
  - Hypervolaemia [Unknown]
  - Acute kidney injury [Recovered/Resolved]
  - Renal tubular necrosis [Unknown]
